FAERS Safety Report 7117028-3 (Version None)
Quarter: 2010Q4

REPORT INFORMATION
  Report Type: 
  Country: None (occurrence: None)
  Receive Date: 20101122
  Receipt Date: 20101115
  Transmission Date: 20110411
  Serious: No
  Sender: FDA-Public Use
  Company Number: US-PFIZER INC-2010148673

PATIENT
  Age: 75 Year
  Sex: Female

DRUGS (3)
  1. CELEBREX [Suspect]
     Indication: PAIN IN EXTREMITY
     Dosage: UNK
     Route: 048
  2. CELEBREX [Suspect]
     Indication: ARTHRALGIA
  3. HYPROMELLOSE/NAPHAZOLINE HCL [Concomitant]
     Indication: DRY EYE
     Dosage: UNK

REACTIONS (1)
  - OCULAR HYPERAEMIA [None]
